FAERS Safety Report 5839243-9 (Version None)
Quarter: 2008Q3

REPORT INFORMATION
  Report Type: 
  Country: None (occurrence: None)
  Receive Date: 20080808
  Receipt Date: 20080729
  Transmission Date: 20090109
  Serious: Yes (Hospitalization, Other)
  Sender: FDA-Public Use
  Company Number: JP-PFIZER INC-2008059854

PATIENT
  Sex: Male
  Weight: 35 kg

DRUGS (9)
  1. ZOLOFT [Suspect]
     Indication: DEPRESSION
     Dosage: DAILY DOSE:50MG
     Route: 048
     Dates: start: 20080623, end: 20080709
  2. HERBAL PREPARATION [Suspect]
     Indication: GASTRITIS
     Dosage: DAILY DOSE:7.5GRAM
     Route: 048
     Dates: start: 20080630, end: 20080709
  3. ABILIT [Concomitant]
     Route: 048
     Dates: start: 20080623, end: 20080709
  4. MYSLEE [Concomitant]
     Route: 048
     Dates: start: 20020910, end: 20080709
  5. MEDIPEACE [Concomitant]
     Route: 048
     Dates: start: 20020910, end: 20080709
  6. ALL OTHER THERAPEUTIC PRODUCTS [Concomitant]
     Route: 048
     Dates: start: 20020910, end: 20080709
  7. SORBITOL LACTATED RINGER'S SOLUTION [Concomitant]
     Route: 051
  8. GLUCOSE [Concomitant]
  9. TATHION [Concomitant]

REACTIONS (2)
  - OCULOMUCOCUTANEOUS SYNDROME [None]
  - STEVENS-JOHNSON SYNDROME [None]
